FAERS Safety Report 23073497 (Version 3)
Quarter: 2023Q4

REPORT INFORMATION
  Report Type: Spontaneous
  Country: IT (occurrence: IT)
  Receive Date: 20231017
  Receipt Date: 20231228
  Transmission Date: 20240109
  Serious: Yes (Death, Hospitalization, Other)
  Sender: FDA-Public Use
  Company Number: None

PATIENT
  Age: 60 Year
  Sex: Female
  Weight: 60 kg

DRUGS (3)
  1. TEMODAL [Suspect]
     Active Substance: TEMOZOLOMIDE
     Indication: Glioblastoma
     Dosage: 120 MILLIGRAM, QD (120 MG/DAY)
     Route: 048
     Dates: start: 20230802, end: 20230821
  2. KEPPRA [Concomitant]
     Active Substance: LEVETIRACETAM
     Indication: Glioblastoma
     Dosage: 500 MILLIGRAM, 2 TABLETS/DAY
     Route: 048
  3. DEXAMETHASONE SODIUM PHOSPHATE [Concomitant]
     Active Substance: DEXAMETHASONE PHOSPHATE\DEXAMETHASONE SODIUM PHOSPHATE
     Indication: Glioblastoma
     Dosage: 4 MILLIGRAM

REACTIONS (1)
  - Bone marrow failure [Fatal]

NARRATIVE: CASE EVENT DATE: 20230812
